FAERS Safety Report 21482136 (Version 1)
Quarter: 2022Q4

REPORT INFORMATION
  Report Type: Spontaneous
  Country: US (occurrence: US)
  Receive Date: 20221020
  Receipt Date: 20221020
  Transmission Date: 20230112
  Serious: No
  Sender: FDA-Public Use
  Company Number: US-CELLTRION INC.-2022US010796

PATIENT

DRUGS (2)
  1. INFLECTRA [Suspect]
     Active Substance: INFLIXIMAB-DYYB
     Indication: Chronic disease
     Dosage: UNK (UNKNOWN DOSE INJECTED IN ARM EVERY 8 WEEKS)
     Route: 065
     Dates: start: 202201
  2. ALEGRA [Concomitant]
     Dosage: 180 MG, ONE A DAY (30 TABLETS)

REACTIONS (8)
  - Sinus congestion [Not Recovered/Not Resolved]
  - Condition aggravated [Unknown]
  - Anosmia [Not Recovered/Not Resolved]
  - Sinus headache [Not Recovered/Not Resolved]
  - Drug level below therapeutic [Unknown]
  - Therapeutic product effect incomplete [Unknown]
  - Paranasal sinus discomfort [Unknown]
  - Unevaluable event [Unknown]

NARRATIVE: CASE EVENT DATE: 20220301
